FAERS Safety Report 5487784-9 (Version None)
Quarter: 2007Q3

REPORT INFORMATION
  Report Type: 
  Country: None (occurrence: None)
  Receive Date: 20070925
  Receipt Date: 20070808
  Transmission Date: 20080115
  Serious: No
  Sender: FDA-Public Use
  Company Number: 2007US001872

PATIENT
  Age: 51 Year
  Sex: Female

DRUGS (4)
  1. VESICARE [Suspect]
     Indication: HYPERTONIC BLADDER
     Dosage: 5 MG, ORAL; 2.5 MG, ORAL
     Route: 048
     Dates: start: 20060101
  2. VESICARE [Suspect]
     Indication: HYPERTONIC BLADDER
     Dosage: 5 MG, ORAL; 2.5 MG, ORAL
     Route: 048
     Dates: start: 20070729
  3. BLOOD PRESSURE MEDICATION [Concomitant]
  4. VITAMINS [Concomitant]

REACTIONS (2)
  - VISION BLURRED [None]
  - WRONG TECHNIQUE IN DRUG USAGE PROCESS [None]
